FAERS Safety Report 4363603-9 (Version None)
Quarter: 2004Q2

REPORT INFORMATION
  Report Type: 
  Country: None (occurrence: None)
  Receive Date: 20040517
  Receipt Date: 20040310
  Transmission Date: 20050107
  Serious: No
  Sender: FDA-Public Use
  Company Number: S04-USA-01268-01

PATIENT
  Age: 72 Year
  Sex: Male

DRUGS (3)
  1. NAMENDA [Suspect]
     Indication: DEMENTIA ALZHEIMER'S TYPE
     Dates: start: 20040128, end: 20040303
  2. CARDIAZEM [Concomitant]
  3. UNKNOWN INHALER [Concomitant]

REACTIONS (1)
  - NIGHTMARE [None]
